FAERS Safety Report 15993712 (Version 2)
Quarter: 2022Q1

REPORT INFORMATION
  Report Type: Spontaneous
  Country: CA (occurrence: CA)
  Receive Date: 20190222
  Receipt Date: 20220203
  Transmission Date: 20220424
  Serious: Yes (Hospitalization)
  Sender: FDA-Public Use
  Company Number: CA-JNJFOC-20190220892

PATIENT
  Age: 52 Year
  Sex: Male

DRUGS (2)
  1. TYLENOL [Interacting]
     Active Substance: ACETAMINOPHEN
     Indication: Headache
     Route: 048
     Dates: end: 19960111
  2. EFFEXOR [Interacting]
     Active Substance: VENLAFAXINE HYDROCHLORIDE
     Indication: Depression
     Route: 048
     Dates: start: 19950101, end: 19960101

REACTIONS (5)
  - Liver function test abnormal [Recovered/Resolved]
  - Insomnia [Recovered/Resolved]
  - Drug interaction [Recovered/Resolved]
  - Mania [Recovered/Resolved]
  - Agitation [Recovered/Resolved]

NARRATIVE: CASE EVENT DATE: 19960101
